FAERS Safety Report 9924418 (Version 1)
Quarter: 2014Q1

REPORT INFORMATION
  Report Type: Spontaneous
  Country: US (occurrence: US)
  Receive Date: 20140226
  Receipt Date: 20140226
  Transmission Date: 20141002
  Serious: Yes (Hospitalization)
  Sender: FDA-Public Use
  Company Number: US-ROCHE-1350969

PATIENT
  Age: 54 Year
  Sex: Male

DRUGS (13)
  1. RIBAVIRIN [Suspect]
     Indication: CHRONIC HEPATITIS C
     Route: 065
  2. RIBAVIRIN [Suspect]
     Route: 065
  3. RIBAVIRIN [Suspect]
     Route: 065
  4. PEGINTERFERON ALFA-2B [Suspect]
     Indication: CHRONIC HEPATITIS C
     Route: 065
  5. BOCEPREVIR [Suspect]
     Indication: CHRONIC HEPATITIS C
     Dosage: FOR 32 WEEKS
     Route: 065
  6. TACROLIMUS [Suspect]
     Indication: PROPHYLAXIS AGAINST TRANSPLANT REJECTION
     Route: 065
  7. TACROLIMUS [Suspect]
     Route: 065
  8. TACROLIMUS [Suspect]
     Dosage: SUSPENDED
     Route: 065
  9. TACROLIMUS [Suspect]
     Route: 065
  10. TACROLIMUS [Suspect]
     Route: 065
  11. TACROLIMUS [Suspect]
     Dosage: DURING TRIPLE THERAPY
     Route: 065
  12. TACROLIMUS [Suspect]
     Dosage: HELD ONE DAY THEN ALTERNATED 0.5MG QD WITH 0.5MG BID
     Route: 065
  13. TACROLIMUS [Suspect]
     Dosage: DURING DUAL THERAPY
     Route: 065

REACTIONS (3)
  - Syncope [Unknown]
  - Anaemia [Unknown]
  - Fatigue [Unknown]
